FAERS Safety Report 5611028-8 (Version None)
Quarter: 2008Q1

REPORT INFORMATION
  Report Type: 
  Country: None (occurrence: None)
  Receive Date: 20080201
  Receipt Date: 20080122
  Transmission Date: 20080703
  Serious: Yes (Hospitalization)
  Sender: FDA-Public Use
  Company Number: B0505235A

PATIENT
  Age: 67 Year
  Sex: Female

DRUGS (5)
  1. ARIXTRA [Suspect]
     Dosage: 7.5MG PER DAY
     Route: 058
     Dates: start: 20071101, end: 20071105
  2. PREVISCAN [Suspect]
     Route: 048
     Dates: end: 20071105
  3. SERETIDE DISKUS [Concomitant]
     Indication: CHRONIC OBSTRUCTIVE PULMONARY DISEASE
     Dosage: 2PUFF PER DAY
     Route: 055
  4. PHYSIOTENS [Concomitant]
     Dosage: .4MG PER DAY
     Route: 048
     Dates: end: 20071105
  5. ISOPTIN [Concomitant]
     Dosage: 240MG PER DAY
     Route: 048
     Dates: end: 20071105

REACTIONS (5)
  - ACTIVATED PARTIAL THROMBOPLASTIN TIME PROLONGED [None]
  - DRUG INTERACTION [None]
  - HAEMATOMA [None]
  - HAEMOGLOBIN DECREASED [None]
  - INCORRECT DOSE ADMINISTERED [None]
